FAERS Safety Report 24877414 (Version 1)
Quarter: 2025Q1

REPORT INFORMATION
  Report Type: Spontaneous
  Country: US (occurrence: US)
  Receive Date: 20250123
  Receipt Date: 20250123
  Transmission Date: 20250409
  Serious: No
  Sender: PAREXEL
  Company Number: US-NAPO PHARMACEUTICALS-2024US003484

PATIENT

DRUGS (4)
  1. MYTESI [Suspect]
     Active Substance: CROFELEMER
     Indication: Product used for unknown indication
     Dosage: 125 MG, TAKE 1 TABLET, BID
     Route: 048
     Dates: start: 20240117
  2. OTEZLA [Concomitant]
     Active Substance: APREMILAST
     Indication: Product used for unknown indication
  3. NEVIRAPINE [Concomitant]
     Active Substance: NEVIRAPINE
     Indication: Product used for unknown indication
  4. DESCOVY [Concomitant]
     Active Substance: EMTRICITABINE\TENOFOVIR ALAFENAMIDE FUMARATE
     Indication: Product used for unknown indication

REACTIONS (1)
  - Diarrhoea [Unknown]
